FAERS Safety Report 6767381-5 (Version None)
Quarter: 2010Q2

REPORT INFORMATION
  Report Type: 
  Country: None (occurrence: None)
  Receive Date: 20100610
  Receipt Date: 20100526
  Transmission Date: 20101027
  Serious: Yes (Hospitalization, Other)
  Sender: FDA-Public Use
  Company Number: 012299

PATIENT
  Sex: Female
  Weight: 87 kg

DRUGS (3)
  1. CIMZIA [Suspect]
     Indication: CROHN'S DISEASE
     Dosage: (400 MG SUBCUTANEOUS), (200 MG EVERY 2 WEEKS SUBCUTANEOUS), (400 MG EVERY 2 WEEKS SUBCUTANEOUS)
     Route: 058
     Dates: start: 20091101, end: 20100201
  2. CIMZIA [Suspect]
     Indication: CROHN'S DISEASE
     Dosage: (400 MG SUBCUTANEOUS), (200 MG EVERY 2 WEEKS SUBCUTANEOUS), (400 MG EVERY 2 WEEKS SUBCUTANEOUS)
     Route: 058
     Dates: start: 20100201, end: 20100301
  3. CIMZIA [Suspect]
     Indication: CROHN'S DISEASE
     Dosage: (400 MG SUBCUTANEOUS), (200 MG EVERY 2 WEEKS SUBCUTANEOUS), (400 MG EVERY 2 WEEKS SUBCUTANEOUS)
     Route: 058
     Dates: start: 20100301

REACTIONS (3)
  - INTESTINAL RESECTION [None]
  - OPEN WOUND [None]
  - PELVIC ABSCESS [None]
